FAERS Safety Report 8486855-2 (Version None)
Quarter: 2012Q3

REPORT INFORMATION
  Report Type: 
  Country: None (occurrence: None)
  Receive Date: 20120704
  Receipt Date: 20120629
  Transmission Date: 20120928
  Serious: Yes (Hospitalization)
  Sender: FDA-Public Use
  Company Number: NL-AMGEN-NLDSP2012005812

PATIENT
  Age: 73 Year
  Sex: Female
  Weight: 48 kg

DRUGS (13)
  1. VINCRISTINE [Suspect]
     Dosage: 2 UNK, UNK
     Route: 042
     Dates: start: 20110704
  2. CYCLOPHOSPHAMIDE [Suspect]
     Indication: DIFFUSE LARGE B-CELL LYMPHOMA
     Dosage: 1155 MG, UNK
     Route: 042
     Dates: start: 20110610
  3. DOXORUBICIN HCL [Suspect]
     Indication: DIFFUSE LARGE B-CELL LYMPHOMA
     Dosage: 77 MG, UNK
     Route: 042
     Dates: start: 20110610
  4. VINCRISTINE [Suspect]
     Indication: DIFFUSE LARGE B-CELL LYMPHOMA
     Dosage: 2 MG, UNK
     Route: 042
     Dates: start: 20110610
  5. OMEPRAZOLE [Concomitant]
     Indication: PROPHYLAXIS AGAINST GASTROINTESTINAL ULCER
     Dosage: UNK
     Route: 048
     Dates: start: 20110520
  6. NEUPOGEN [Suspect]
     Indication: DIFFUSE LARGE B-CELL LYMPHOMA
     Dosage: 6 MG, UNK
     Route: 058
     Dates: start: 20070719
  7. PREDNISONE [Suspect]
     Dosage: 100 MG, UNK
     Route: 048
     Dates: start: 20110704
  8. CYCLOPHOSPHAMIDE [Suspect]
     Dosage: 1155 MG, UNK
     Route: 042
     Dates: start: 20110704
  9. PREDNISONE [Suspect]
     Indication: DIFFUSE LARGE B-CELL LYMPHOMA
     Dosage: 100 MG, UNK
     Route: 048
     Dates: start: 20110610
  10. RITUXIMAB [Suspect]
     Indication: DIFFUSE LARGE B-CELL LYMPHOMA
     Dosage: 577 MG, UNK
     Route: 042
     Dates: start: 20110610
  11. RITUXIMAB [Suspect]
     Dosage: 560 MG, UNK
     Route: 042
     Dates: start: 20110704
  12. DOXORUBICIN HCL [Suspect]
     Dosage: 75 MG, UNK
     Route: 042
     Dates: start: 20110704
  13. PERINDOPRIL ERBUMINE [Concomitant]
     Indication: BLOOD PRESSURE
     Dosage: 10 MG, UNK
     Route: 048

REACTIONS (5)
  - MUSCLE SPASMS [None]
  - FEBRILE NEUTROPENIA [None]
  - PNEUMOCYSTIS JIROVECI PNEUMONIA [None]
  - STAPHYLOCOCCAL BACTERAEMIA [None]
  - SYNCOPE [None]
